FAERS Safety Report 8183817-X (Version None)
Quarter: 2012Q1

REPORT INFORMATION
  Report Type: 
  Country: None (occurrence: None)
  Receive Date: 20120305
  Receipt Date: 20120229
  Transmission Date: 20120608
  Serious: No
  Sender: FDA-Public Use
  Company Number: US-PFIZER INC-2012040121

PATIENT
  Sex: Female
  Weight: 67.6 kg

DRUGS (27)
  1. COMBIVENT [Concomitant]
     Indication: ASTHMA
     Dosage: UNK, 1X/DAY
     Route: 055
  2. EXELON [Concomitant]
     Indication: DEMENTIA ALZHEIMER'S TYPE
     Dosage: 9.5 MG, UNK
  3. HYDROXYZINE [Concomitant]
     Indication: SLEEP DISORDER
     Dosage: 10 MG, 2X/DAY AS NEEDED
     Route: 048
  4. SYNTHROID [Concomitant]
     Indication: THYROID DISORDER
     Dosage: 50 UG, UNK
  5. NAMENDA [Concomitant]
     Indication: DEMENTIA ALZHEIMER'S TYPE
     Dosage: 10 MG, 2X/DAY
  6. XALATAN [Concomitant]
     Indication: GLAUCOMA
     Dosage: UNK
  7. PREVIDENT [Concomitant]
     Indication: TOOTH DISORDER
     Dosage: UNK
  8. CALTRATE 600+D [Concomitant]
     Dosage: UNK, 1X/DAY
  9. ONDANSETRON [Concomitant]
     Indication: GASTROINTESTINAL DISORDER
     Dosage: 8 MG, 4X/DAY
  10. CHANTIX [Suspect]
     Indication: SMOKING CESSATION THERAPY
     Dosage: 0.5 MG, 1X/DAY
     Route: 048
     Dates: start: 20120206, end: 20120201
  11. CHANTIX [Suspect]
     Dosage: UNK
     Route: 048
     Dates: start: 20120201, end: 20120201
  12. CHANTIX [Suspect]
     Dosage: 1 MG, 2X/DAY
     Route: 048
     Dates: start: 20120201
  13. TIZANIDINE [Concomitant]
     Indication: BACK DISORDER
     Dosage: 4 MG, 3X/DAY
  14. GAS-X [Concomitant]
     Dosage: UNK,2X/DAY
     Route: 048
  15. SPIRIVA [Concomitant]
     Indication: ASTHMA
     Dosage: 18 UG, 1X/DAY
  16. SUDAFED 12 HOUR [Concomitant]
     Indication: HYPERSENSITIVITY
     Dosage: UNK, 1X/DAY
     Route: 048
  17. AVINZA [Concomitant]
     Indication: BACK DISORDER
     Dosage: 60 MG, 2X/DAY
     Route: 048
  18. MULTI-VITAMINS [Concomitant]
     Dosage: UNK
  19. MORPHINE SULFATE [Concomitant]
     Indication: ARTHRITIS
     Dosage: 30 MG, 2X/DAY
     Route: 048
  20. SIMVASTATIN [Concomitant]
     Indication: BLOOD CHOLESTEROL INCREASED
     Dosage: 200 MG, UNK
  21. TEMAZEPAM [Concomitant]
     Indication: SLEEP DISORDER
     Dosage: 30 MG, 1X/DAY
  22. AMLODIPINE [Concomitant]
     Indication: HYPERTENSION
     Dosage: 2.5 MG, 1X/DAY
     Route: 048
  23. ACIPHEX [Concomitant]
     Indication: GASTROINTESTINAL DISORDER
     Dosage: 20 MG, 2X/DAY
     Route: 048
  24. CELEBREX [Concomitant]
     Indication: ARTHRITIS
     Dosage: 200 MG, 1X/DAY
     Route: 048
  25. CENTRUM SILVER ULTRA WOMENS [Concomitant]
     Dosage: UNK, 1X/DAY
  26. NASONEX [Concomitant]
     Indication: ASTHMA
     Dosage: UNK
  27. MORPHINE [Concomitant]
     Indication: ARTHRITIS
     Dosage: 4 MG, UNK

REACTIONS (7)
  - MOOD ALTERED [None]
  - FRUSTRATION [None]
  - DYSPNOEA [None]
  - AGITATION [None]
  - ANGER [None]
  - DYSGEUSIA [None]
  - ABNORMAL DREAMS [None]
